FAERS Safety Report 4753590-3 (Version None)
Quarter: 2005Q3

REPORT INFORMATION
  Report Type: 
  Country: None (occurrence: None)
  Receive Date: 20050824
  Receipt Date: 20050813
  Transmission Date: 20060218
  Serious: Yes (Other)
  Sender: FDA-Public Use
  Company Number: 2005053971

PATIENT
  Age: 73 Year
  Sex: Male

DRUGS (4)
  1. CABERGOLINE [Suspect]
     Indication: PARKINSON'S DISEASE
     Dosage: 1 GRAM (DAILY), ORAL
     Route: 048
     Dates: start: 20040309, end: 20050704
  2. SINEMET [Concomitant]
  3. CLONAZEPAM [Concomitant]
  4. REMERON [Concomitant]

REACTIONS (1)
  - CARDIAC VALVE DISEASE [None]
